FAERS Safety Report 7844305-0 (Version None)
Quarter: 2011Q4

REPORT INFORMATION
  Report Type: 
  Country: None (occurrence: None)
  Receive Date: 20111025
  Receipt Date: 20111018
  Transmission Date: 20120403
  Serious: Yes (Other)
  Sender: FDA-Public Use
  Company Number: US-SHIRE-ALL1-2011-04015

PATIENT
  Sex: Female
  Weight: 61.224 kg

DRUGS (4)
  1. AMPHETAMINE AND DEXTROAMPHETAMINE SALTS [Suspect]
     Indication: ATTENTION DEFICIT/HYPERACTIVITY DISORDER
     Dosage: 20 MG, 1X/DAY:QD
     Route: 048
     Dates: start: 20110901, end: 20111012
  2. AMPHETAMINE AND DEXTROAMPHETAMINE SALTS [Suspect]
     Dosage: 30 MG, 1X/DAY:QD
     Route: 048
     Dates: start: 20111013
  3. SIX DIFFERENT VITAMINS AND SUPPLEMENTS [Concomitant]
     Indication: SUPPLEMENTATION THERAPY
     Dosage: UNK, UNKNOWN
     Route: 048
  4. CODEINE SULFATE [Suspect]
     Indication: CROHN'S DISEASE
     Dosage: 10 MG, OTHER (1 TABLET EVERY FOUR HOURS)
     Route: 048
     Dates: start: 20100101

REACTIONS (10)
  - IMPULSIVE BEHAVIOUR [None]
  - FEELING ABNORMAL [None]
  - DRUG INTERACTION [None]
  - DEPRESSED MOOD [None]
  - ABSCESS INTESTINAL [None]
  - DRUG EFFECT DECREASED [None]
  - CONDITION AGGRAVATED [None]
  - DISTURBANCE IN ATTENTION [None]
  - FATIGUE [None]
  - IRRITABILITY [None]
